FAERS Safety Report 6998747-6 (Version None)
Quarter: 2010Q3

REPORT INFORMATION
  Report Type: 
  Country: None (occurrence: None)
  Receive Date: 20100920
  Receipt Date: 20100525
  Transmission Date: 20110219
  Serious: No
  Sender: FDA-Public Use
  Company Number: US-ASTRAZENECA-2010SE24015

PATIENT
  Sex: Female

DRUGS (5)
  1. SEROQUEL [Suspect]
     Indication: STRESS
     Route: 048
     Dates: end: 20030101
  2. SEROQUEL [Suspect]
     Route: 048
     Dates: end: 20030101
  3. SEROQUEL [Suspect]
     Route: 048
     Dates: end: 20030101
  4. SEROQUEL [Suspect]
     Dosage: HIGH DOSE
     Route: 048
     Dates: end: 20030101
  5. GLYBERIDE [Concomitant]

REACTIONS (2)
  - DIABETES MELLITUS [None]
  - HYPOAESTHESIA [None]
